FAERS Safety Report 7712563-9 (Version None)
Quarter: 2011Q3

REPORT INFORMATION
  Report Type: 
  Country: None (occurrence: None)
  Receive Date: 20110823
  Receipt Date: 20110809
  Transmission Date: 20111222
  Serious: Yes (Disabling)
  Sender: FDA-Public Use
  Company Number: 2011AP001731

PATIENT
  Age: 78 Year
  Sex: Female

DRUGS (14)
  1. ALUMINIUM HYDROXIDE (ALUMINIUM HYDROXIDE) [Concomitant]
  2. CALCIUM PHOSPHATE (CALCIUM PHOSPHATE) [Concomitant]
  3. ALGINIC ACID (ALGINIC ACID) [Concomitant]
  4. ALENDRONATE SODIUM [Suspect]
     Indication: OSTEOPOROTIC FRACTURE
     Dosage: 70 MG; PO
     Route: 048
     Dates: start: 20100911, end: 20110408
  5. ERGOCALCIFEROL [Concomitant]
  6. MAGNESIUM TRISILICATE (MAGNESIUM TRISILICATE) [Concomitant]
  7. POTASSIUM BICARBONATE (POTASSIUM BISCARBONATE) [Concomitant]
  8. SODIUM ALGINATE (SODIUM ALGINATE) [Concomitant]
  9. OMEPRAZOLE [Concomitant]
  10. ACETAMINOPHEN [Concomitant]
  11. BENDROFLUMETHIAZIDE (BENDROFLUMETHIAZIDE) [Concomitant]
  12. CALCIUM CARBONATE [Concomitant]
  13. SODIUM BICARBONATE IN PLASTIC CONTAINER [Concomitant]
  14. CALCIUM LACTATE (CALCIUM LACTATE) [Concomitant]

REACTIONS (3)
  - DENTAL DISCOMFORT [None]
  - OSTEONECROSIS OF JAW [None]
  - ORAL PAIN [None]
